FAERS Safety Report 6151502-1 (Version None)
Quarter: 2009Q2

REPORT INFORMATION
  Report Type: 
  Country: None (occurrence: None)
  Receive Date: 20090410
  Receipt Date: 20090402
  Transmission Date: 20091009
  Serious: Yes (Disabling, Other)
  Sender: FDA-Public Use
  Company Number: DK-AVENTIS-200821368GDDC

PATIENT
  Age: 55 Year
  Sex: Female

DRUGS (4)
  1. TAXOTERE [Suspect]
     Route: 042
     Dates: start: 20070604, end: 20070604
  2. LANSOPRAZOLE [Concomitant]
     Route: 048
  3. EPIRUBICIN [Concomitant]
     Dates: start: 20070402
  4. CYCLOPHOSPHAMIDE [Concomitant]
     Dates: start: 20070402

REACTIONS (3)
  - ALOPECIA [None]
  - NAIL DISORDER [None]
  - TOOTH EROSION [None]
